FAERS Safety Report 11263742 (Version 2)
Quarter: 2015Q3

REPORT INFORMATION
  Report Type: Spontaneous
  Country: DE (occurrence: DE)
  Receive Date: 20150713
  Receipt Date: 20150813
  Transmission Date: 20151125
  Serious: Yes (Hospitalization, Other)
  Sender: FDA-Public Use
  Company Number: DE-ABBVIE-15K-062-1423565-00

PATIENT
  Age: 47 Year
  Sex: Female

DRUGS (3)
  1. AZATHIOPRINE. [Concomitant]
     Active Substance: AZATHIOPRINE
     Indication: PRODUCT USED FOR UNKNOWN INDICATION
     Dates: start: 200910, end: 201409
  2. HUMIRA [Suspect]
     Active Substance: ADALIMUMAB
     Dosage: EVERY 1-2 WEEKS
     Route: 058
     Dates: start: 201502, end: 201507
  3. HUMIRA [Suspect]
     Active Substance: ADALIMUMAB
     Indication: COLITIS ULCERATIVE
     Dosage: EVERY 1-2 WEEKS
     Route: 058
     Dates: start: 201009, end: 201409

REACTIONS (2)
  - Hepatocellular carcinoma [Recovered/Resolved]
  - Drug effect decreased [Recovered/Resolved]

NARRATIVE: CASE EVENT DATE: 201409
